FAERS Safety Report 10557935 (Version 1)
Quarter: 2014Q4

REPORT INFORMATION
  Report Type: Spontaneous
  Country: JP (occurrence: None)
  Receive Date: 20141029
  Receipt Date: 20141029
  Transmission Date: 20150529
  Serious: Yes (Life-Threatening, Hospitalization)
  Sender: FDA-Public Use
  Company Number: FK201404418

PATIENT
  Age: 26 Year
  Sex: Female

DRUGS (6)
  1. RUBELLA VIRUS VACCINE LIVE NOS [Suspect]
     Active Substance: RUBELLA VIRUS STRAIN WISTAR RA 27/3 LIVE ANTIGEN
  2. CEFAZOLIN (MANUFACTURER UNKNOWN) (CEFAZOLIN) (CEFAZOLIN) [Suspect]
     Active Substance: CEFAZOLIN
  3. PARACETAMOL [Suspect]
     Active Substance: ACETAMINOPHEN
     Indication: PYREXIA
     Dosage: 80 MG, 2 IN 1 TOTAL
  4. PIPERACILLIN/TAZOBACTAM [Suspect]
     Active Substance: PIPERACILLIN SODIUM\TAZOBACTAM SODIUM
  5. ETHENZAMIDE [Suspect]
     Active Substance: ETHENZAMIDE
     Indication: PRODUCT USED FOR UNKNOWN INDICATION
     Dosage: 200 MG, 1 IN 1 D?
  6. CEFACLOR. [Suspect]
     Active Substance: CEFACLOR
     Indication: PRODUCT USED FOR UNKNOWN INDICATION

REACTIONS (4)
  - Tubulointerstitial nephritis [None]
  - Renal tubular necrosis [None]
  - Acute kidney injury [None]
  - Haemodialysis [None]
